FAERS Safety Report 10457869 (Version 2)
Quarter: 2014Q4

REPORT INFORMATION
  Report Type: Spontaneous
  Country: CN (occurrence: CN)
  Receive Date: 20140916
  Receipt Date: 20141029
  Transmission Date: 20150528
  Serious: Yes (Other)
  Sender: FDA-Public Use
  Company Number: CN-GLAXOSMITHKLINE-B1033680A

PATIENT
  Age: 6 Year
  Sex: Female

DRUGS (1)
  1. SERETIDE [Suspect]
     Active Substance: FLUTICASONE FUROATE\SALMETEROL XINAFOATE
     Indication: PRODUCT USED FOR UNKNOWN INDICATION
     Dosage: 50/100
     Route: 065

REACTIONS (3)
  - Cough [Recovered/Resolved]
  - Choking [Recovered/Resolved]
  - Product quality issue [Unknown]
